FAERS Safety Report 19155894 (Version 1)
Quarter: 2021Q2

REPORT INFORMATION
  Report Type: Spontaneous
  Country: US (occurrence: US)
  Receive Date: 20210420
  Receipt Date: 20210420
  Transmission Date: 20210717
  Serious: No
  Sender: FDA-Public Use
  Company Number: US-ASTRAZENECA-2021A324840

PATIENT
  Age: 78 Year
  Sex: Female

DRUGS (1)
  1. NEXIUM 24HR [Suspect]
     Active Substance: ESOMEPRAZOLE MAGNESIUM
     Indication: ABDOMINAL PAIN UPPER
     Dosage: UNKNOWN
     Route: 065

REACTIONS (6)
  - Abdominal discomfort [Unknown]
  - Product use in unapproved indication [Unknown]
  - Product intolerance [Unknown]
  - Malaise [Recovering/Resolving]
  - Diarrhoea [Unknown]
  - Muscle spasms [Recovering/Resolving]
